FAERS Safety Report 8520862-6 (Version None)
Quarter: 2012Q2

REPORT INFORMATION
  Report Type: 
  Country: None (occurrence: None)
  Receive Date: 20120409
  Receipt Date: 20120123
  Transmission Date: 20120825
  Serious: Yes (Other)
  Sender: FDA-Public Use
  Company Number: PHEH2012US001973

PATIENT
  Age: 73 Year
  Sex: Male

DRUGS (5)
  1. ALLOPURINOL [Concomitant]
  2. DIAZEPAM [Concomitant]
  3. METOPROLOL TARTRATE [Concomitant]
  4. VALTURNA [Suspect]
     Dosage: 1 DF, QD
  5. TIAZAPAM (TIAZAPAM) [Concomitant]

REACTIONS (5)
  - WEIGHT INCREASED [None]
  - LETHARGY [None]
  - BLOOD PRESSURE INCREASED [None]
  - RENAL FAILURE ACUTE [None]
  - HEADACHE [None]
